FAERS Safety Report 5891865-5 (Version None)
Quarter: 2008Q3

REPORT INFORMATION
  Report Type: 
  Country: None (occurrence: None)
  Receive Date: 20080922
  Receipt Date: 20080910
  Transmission Date: 20090109
  Serious: Yes (Other)
  Sender: FDA-Public Use
  Company Number: JP-PFIZER INC-2008076588

PATIENT
  Age: 78 Year
  Sex: Female
  Weight: 48.1 kg

DRUGS (3)
  1. SOLU-MEDROL [Suspect]
     Indication: GLOMERULONEPHRITIS RAPIDLY PROGRESSIVE
     Dosage: DAILY DOSE:500MG
     Route: 042
  2. PREDONINE [Concomitant]
     Route: 048
  3. CYCLOPHOSPHAMIDE [Concomitant]
     Route: 042

REACTIONS (1)
  - BRONCHOPULMONARY ASPERGILLOSIS [None]
